FAERS Safety Report 7381458-5 (Version None)
Quarter: 2011Q1

REPORT INFORMATION
  Report Type: 
  Country: None (occurrence: None)
  Receive Date: 20110329
  Receipt Date: 20110322
  Transmission Date: 20110831
  Serious: Yes (Hospitalization)
  Sender: FDA-Public Use
  Company Number: NL-PFIZER INC-2007048854

PATIENT
  Age: 73 Year
  Sex: Male
  Weight: 69 kg

DRUGS (5)
  1. SUNITINIB MALATE [Suspect]
     Indication: METASTATIC RENAL CELL CARCINOMA
     Dosage: 37.5 UNK, UNK
     Route: 048
     Dates: start: 20070515
  2. NORVASC [Concomitant]
  3. TOLBUTAMIDE [Concomitant]
  4. DURATEARS [Concomitant]
  5. ATENOLOL [Concomitant]

REACTIONS (1)
  - COGNITIVE DISORDER [None]
